FAERS Safety Report 9681482 (Version 2)
Quarter: 2014Q1

REPORT INFORMATION
  Report Type: Report from Study
  Country: CA (occurrence: CA)
  Receive Date: 20131111
  Receipt Date: 20140212
  Transmission Date: 20141002
  Serious: Yes (Death, Other)
  Sender: FDA-Public Use
  Company Number: CA-JNJFOC-20131103093

PATIENT
  Age: 60 Year
  Sex: Male

DRUGS (3)
  1. SIMPONI [Suspect]
     Indication: RHEUMATOID ARTHRITIS
     Route: 058
     Dates: start: 20120530, end: 201309
  2. CYCLOPHOSPHAMIDE [Suspect]
     Indication: PRODUCT USED FOR UNKNOWN INDICATION
     Route: 065
  3. PREDNISONE [Concomitant]
     Route: 065

REACTIONS (2)
  - Toxicity to various agents [Fatal]
  - Pulmonary fibrosis [Not Recovered/Not Resolved]
